FAERS Safety Report 5874629-8 (Version None)
Quarter: 2008Q3

REPORT INFORMATION
  Report Type: 
  Country: None (occurrence: None)
  Receive Date: 20080902
  Receipt Date: 20080815
  Transmission Date: 20090109
  Serious: Yes (Life-Threatening, Hospitalization)
  Sender: FDA-Public Use
  Company Number: 0510008

PATIENT
  Age: 9 Month
  Sex: Male
  Weight: 11 kg

DRUGS (1)
  1. ORFADIN [Suspect]
     Indication: TYROSINAEMIA
     Dosage: ORAL
     Route: 048
     Dates: start: 20040218, end: 20050205

REACTIONS (6)
  - HAEMOGLOBIN DECREASED [None]
  - HEPATIC FAILURE [None]
  - LIVER TRANSPLANT [None]
  - LYMPHOMA [None]
  - NO THERAPEUTIC RESPONSE [None]
  - RENAL FAILURE [None]
